FAERS Safety Report 15114721 (Version 1)
Quarter: 2018Q3

REPORT INFORMATION
  Report Type: Spontaneous
  Country: US (occurrence: US)
  Receive Date: 20180706
  Receipt Date: 20180706
  Transmission Date: 20181010
  Serious: Yes (Other)
  Sender: FDA-Public Use
  Company Number: US-GLAXOSMITHKLINE-US2018117647

PATIENT
  Age: 61 Year
  Sex: Female

DRUGS (1)
  1. BENLYSTA [Suspect]
     Active Substance: BELIMUMAB
     Indication: SYSTEMIC LUPUS ERYTHEMATOSUS
     Dosage: 720 MG, CYC
     Route: 042
     Dates: start: 2016

REACTIONS (3)
  - Oxygen therapy [Not Recovered/Not Resolved]
  - Drug dose omission [Unknown]
  - Toe amputation [Recovering/Resolving]

NARRATIVE: CASE EVENT DATE: 201805
